FAERS Safety Report 15997958 (Version 3)
Quarter: 2019Q2

REPORT INFORMATION
  Report Type: Spontaneous
  Country: JP (occurrence: JP)
  Receive Date: 20190222
  Receipt Date: 20190401
  Transmission Date: 20190711
  Serious: Yes (Life-Threatening, Hospitalization, Other)
  Sender: FDA-Public Use
  Company Number: JP-SEATTLE GENETICS-2019SGN00368

PATIENT
  Age: 65 Year
  Sex: Male
  Weight: 52.5 kg

DRUGS (28)
  1. ADCETRIS [Suspect]
     Active Substance: BRENTUXIMAB VEDOTIN
     Indication: HODGKIN^S DISEASE
     Dosage: 69 MILLIGRAM, Q14D
     Route: 041
     Dates: start: 20181120, end: 20181204
  2. FILGRASTIM [Concomitant]
     Active Substance: FILGRASTIM
     Indication: PROPHYLAXIS
     Dosage: 7.5 MICROGRAM, QD
     Route: 058
     Dates: start: 20181123, end: 20181127
  3. EMEND [Concomitant]
     Active Substance: APREPITANT
     Indication: PROPHYLAXIS
     Dosage: UNK UNK, QD
     Route: 048
     Dates: start: 20181120, end: 20181122
  4. NATRIX [Concomitant]
     Active Substance: INDAPAMIDE
     Dosage: UNK
     Route: 065
  5. GRANISETRON HYDROCHLORIDE                       /01178102/ [Concomitant]
     Dosage: 3 MILLIGRAM, QD
     Route: 041
     Dates: start: 20190115, end: 20190115
  6. G LASTA [Concomitant]
     Active Substance: PEGFILGRASTIM
     Indication: PROPHYLAXIS
     Dosage: 3.6 MILLIGRAM, QD
     Route: 058
     Dates: start: 20181207, end: 20181207
  7. EMEND [Concomitant]
     Active Substance: APREPITANT
     Dosage: UNK UNK, QD
     Route: 048
     Dates: start: 20181204, end: 20181206
  8. ADCETRIS [Suspect]
     Active Substance: BRENTUXIMAB VEDOTIN
     Dosage: 52 MILLIGRAM, Q14D
     Route: 041
     Dates: start: 20190115, end: 20190115
  9. EXAL [VINBLASTINE SULFATE] [Concomitant]
     Active Substance: VINBLASTINE SULFATE
     Dosage: 9 MILLIGRAM, Q2WEEKS
     Route: 041
     Dates: start: 20190115, end: 20190115
  10. GRANISETRON HYDROCHLORIDE                       /01178102/ [Concomitant]
     Dosage: 3 MILLIGRAM, QD
     Route: 041
     Dates: start: 20181225, end: 20181225
  11. EMEND [Concomitant]
     Active Substance: APREPITANT
     Dosage: UNK UNK, QD
     Route: 048
     Dates: start: 20190115, end: 20190117
  12. DACARBAZINE. [Concomitant]
     Active Substance: DACARBAZINE
     Indication: HODGKIN^S DISEASE
     Dosage: UNK
     Route: 041
     Dates: start: 201812
  13. DACARBAZINE. [Concomitant]
     Active Substance: DACARBAZINE
     Dosage: 440 MILLIGRAM, Q2WEEKS
     Route: 041
     Dates: start: 20181225, end: 20181225
  14. DACARBAZINE. [Concomitant]
     Active Substance: DACARBAZINE
     Dosage: 440 MILLIGRAM, Q2WEEKS
     Route: 041
     Dates: start: 20190115, end: 20190115
  15. LYRICA [Concomitant]
     Active Substance: PREGABALIN
     Dosage: UNK
     Route: 065
  16. ADCETRIS [Suspect]
     Active Substance: BRENTUXIMAB VEDOTIN
     Dosage: 69 MILLIGRAM, Q14D
     Route: 041
     Dates: start: 20181225, end: 20181225
  17. DOXORUBICIN HYDROCHLORIDE. [Suspect]
     Active Substance: DOXORUBICIN HYDROCHLORIDE
     Indication: HODGKIN^S DISEASE
     Dosage: 40 MILLIGRAM, Q14D
     Route: 041
     Dates: start: 20181120, end: 20181204
  18. DOXORUBICIN HYDROCHLORIDE. [Suspect]
     Active Substance: DOXORUBICIN HYDROCHLORIDE
     Dosage: 40 MILLIGRAM, Q14D
     Route: 041
     Dates: start: 20181225, end: 20181225
  19. EXAL [VINBLASTINE SULFATE] [Concomitant]
     Active Substance: VINBLASTINE SULFATE
     Indication: HODGKIN^S DISEASE
     Dosage: 9 MILLIGRAM, Q2WEEKS
     Route: 041
     Dates: start: 20181120, end: 20181204
  20. GRANISETRON HYDROCHLORIDE                       /01178102/ [Concomitant]
     Dosage: 3 MILLIGRAM, QD
     Route: 041
     Dates: start: 20181204, end: 20181204
  21. G LASTA [Concomitant]
     Active Substance: PEGFILGRASTIM
     Dosage: 3.6 MILLIGRAM, QD
     Route: 058
     Dates: start: 20181227, end: 20181227
  22. DOXORUBICIN HYDROCHLORIDE. [Suspect]
     Active Substance: DOXORUBICIN HYDROCHLORIDE
     Dosage: 40 MILLIGRAM, Q14D
     Route: 041
     Dates: start: 20190115, end: 20190115
  23. DACARBAZINE. [Concomitant]
     Active Substance: DACARBAZINE
     Dosage: 440 MILLIGRAM, Q2WEEKS
     Route: 041
     Dates: start: 20181120, end: 20181204
  24. OPALMON [Concomitant]
     Active Substance: LIMAPROST
     Dosage: UNK
     Route: 065
  25. EXAL [VINBLASTINE SULFATE] [Concomitant]
     Active Substance: VINBLASTINE SULFATE
     Dosage: 9 MILLIGRAM, Q2WEEKS
     Route: 041
     Dates: start: 20181225, end: 20181225
  26. CANDESARTAN                        /01349502/ [Concomitant]
     Active Substance: CANDESARTAN
     Dosage: UNK
     Route: 065
  27. GRANISETRON HYDROCHLORIDE                       /01178102/ [Concomitant]
     Indication: PROPHYLAXIS
     Dosage: 3 MILLIGRAM, QD
     Route: 041
     Dates: start: 20181120, end: 20181120
  28. BLOSTAR M [Concomitant]
     Dosage: UNK
     Route: 065

REACTIONS (6)
  - Pyrexia [Unknown]
  - Neuropathy peripheral [Unknown]
  - Chronic sinusitis [Recovering/Resolving]
  - Nasopharyngitis [Unknown]
  - Acute myocardial infarction [Recovering/Resolving]
  - Condition aggravated [Recovering/Resolving]

NARRATIVE: CASE EVENT DATE: 20181218
